FAERS Safety Report 13364171 (Version 1)
Quarter: 2017Q1

REPORT INFORMATION
  Report Type: Report from Study
  Country: None (occurrence: BR)
  Receive Date: 20170323
  Receipt Date: 20170323
  Transmission Date: 20170429
  Serious: Yes (Other)
  Sender: FDA-Public Use
  Company Number: BR-ABBVIE-17P-020-1919410-00

PATIENT
  Sex: Male
  Weight: 170 kg

DRUGS (4)
  1. CALCIUM [Concomitant]
     Active Substance: CALCIUM
     Indication: PROPHYLAXIS
     Dosage: 1 TABLET IN THE MORNING, WITH SYNTHROID
  2. CENTRUM [Concomitant]
     Active Substance: VITAMINS
     Indication: PROPHYLAXIS
     Dosage: 1 TABLET IN THE MORNING, WITH SYNTHROID
  3. SYNTHROID [Suspect]
     Active Substance: LEVOTHYROXINE SODIUM
     Indication: HYPOTHYROIDISM
     Dosage: DAILY DOSE: 1 TABLET
     Route: 048
  4. ASPIRINA [Concomitant]
     Active Substance: ASPIRIN
     Indication: PAIN
     Dosage: SOMETIMES, WHEN PRESENTS PAIN

REACTIONS (3)
  - Labelled drug-drug interaction medication error [Unknown]
  - Drug administration error [Unknown]
  - Obesity [Not Recovered/Not Resolved]
